FAERS Safety Report 4333320-X (Version None)
Quarter: 2004Q2

REPORT INFORMATION
  Report Type: 
  Country: None (occurrence: None)
  Receive Date: 20040405
  Receipt Date: 20040330
  Transmission Date: 20050107
  Serious: Yes (Hospitalization)
  Sender: FDA-Public Use
  Company Number: 04-03-0471

PATIENT
  Age: 4 Year
  Sex: Male

DRUGS (3)
  1. BENAZEPRIL HCL [Suspect]
     Indication: HYPERTENSION
     Dosage: 0.3-0.2MG/KG ORAL
     Route: 048
  2. BENAZEPRIL HCL [Suspect]
     Indication: PROTEINURIA
     Dosage: 0.3-0.2MG/KG ORAL
     Route: 048
  3. BECLOMETHASONE DIPROPIONATE [Concomitant]

REACTIONS (13)
  - ANION GAP INCREASED [None]
  - ANOREXIA [None]
  - ASTHENIA [None]
  - FATIGUE [None]
  - GASTROENTERITIS [None]
  - HYPERCHLORAEMIA [None]
  - HYPOALDOSTERONISM [None]
  - HYPOTHALAMO-PITUITARY DISORDERS [None]
  - METABOLIC ACIDOSIS [None]
  - NAUSEA [None]
  - RENAL TUBULAR ACIDOSIS [None]
  - URINE SODIUM INCREASED [None]
  - VOMITING [None]
